FAERS Safety Report 14245963 (Version 6)
Quarter: 2018Q3

REPORT INFORMATION
  Report Type: Report from Study
  Country: GB (occurrence: GB)
  Receive Date: 20171204
  Receipt Date: 20180727
  Transmission Date: 20181010
  Serious: Yes (Death, Hospitalization, Other)
  Sender: FDA-Public Use
  Company Number: GB-ROCHE-1642672

PATIENT
  Age: 83 Year
  Sex: Male

DRUGS (4)
  1. MORPHINE [Concomitant]
     Active Substance: MORPHINE
  2. CODEINE [Concomitant]
     Active Substance: CODEINE
  3. N?ACETYLCYSTEINE [Concomitant]
     Active Substance: ACETYLCYSTEINE
  4. ESBRIET [Suspect]
     Active Substance: PIRFENIDONE
     Indication: IDIOPATHIC PULMONARY FIBROSIS
     Route: 048
     Dates: start: 20140924

REACTIONS (28)
  - Malaise [Unknown]
  - Abdominal distension [Unknown]
  - Rhinorrhoea [Unknown]
  - Pneumonia [Fatal]
  - Productive cough [Unknown]
  - Back pain [Unknown]
  - Dyspnoea [Unknown]
  - Heart rate irregular [Unknown]
  - Vomiting [Unknown]
  - Lower respiratory tract infection [Unknown]
  - Nasopharyngitis [Unknown]
  - Pain in extremity [Unknown]
  - Palpitations [Unknown]
  - Cerebrovascular accident [Unknown]
  - Sputum increased [Not Recovered/Not Resolved]
  - Dysphagia [Unknown]
  - Epistaxis [Unknown]
  - Hypersomnia [Unknown]
  - Cough [Not Recovered/Not Resolved]
  - Wheezing [Unknown]
  - Weight increased [Unknown]
  - Heart valve incompetence [Unknown]
  - Arthritis [Unknown]
  - Dementia [Unknown]
  - Constipation [Unknown]
  - Movement disorder [Unknown]
  - Gait disturbance [Unknown]
  - Asthenia [Unknown]

NARRATIVE: CASE EVENT DATE: 20160605
